FAERS Safety Report 20701991 (Version 2)
Quarter: 2022Q2

REPORT INFORMATION
  Report Type: Report from Study
  Country: US (occurrence: US)
  Receive Date: 20220412
  Receipt Date: 20220520
  Transmission Date: 20220721
  Serious: Yes (Hospitalization, Other)
  Sender: FDA-Public Use
  Company Number: US-BRISTOL-MYERS SQUIBB COMPANY-2022-014254

PATIENT
  Age: 70 Year
  Sex: Male
  Weight: 94 kg

DRUGS (40)
  1. DEXAMETHASONE [Suspect]
     Active Substance: DEXAMETHASONE
     Indication: Plasma cell myeloma
     Route: 048
     Dates: start: 20220120, end: 20220120
  2. ELOTUZUMAB [Suspect]
     Active Substance: ELOTUZUMAB
     Indication: Plasma cell myeloma
     Route: 042
     Dates: start: 20220120, end: 20220120
  3. ASPIRIN [Concomitant]
     Active Substance: ASPIRIN
     Indication: Prophylaxis
     Dosage: 81 MG
     Route: 048
     Dates: start: 20220120
  4. ACETAMINOPHEN [Concomitant]
     Active Substance: ACETAMINOPHEN
     Indication: Premedication
     Dosage: 650 MG
     Route: 048
     Dates: start: 20220120
  5. ACYCLOVIR [Concomitant]
     Active Substance: ACYCLOVIR
     Indication: Prophylaxis
     Dosage: 400 MG
     Route: 048
     Dates: start: 20190304
  6. ACYCLOVIR [Concomitant]
     Active Substance: ACYCLOVIR
  7. AMLODIPINE [Concomitant]
     Active Substance: AMLODIPINE BESYLATE
     Indication: Hypertension
     Dosage: 10 MG
     Route: 048
     Dates: start: 20130405
  8. DIPHENHYDRAMINE [Concomitant]
     Active Substance: DIPHENHYDRAMINE
     Indication: Premedication
     Dosage: 50 MG
     Route: 048
     Dates: start: 20220120
  9. DOCUSATE [Concomitant]
     Active Substance: DOCUSATE
     Indication: Constipation
     Dosage: 100 MG
     Route: 048
     Dates: start: 20181030
  10. DOCUSATE [Concomitant]
     Active Substance: DOCUSATE
  11. DONEPEZIL [Concomitant]
     Active Substance: DONEPEZIL
     Indication: Memory impairment
     Dosage: 10 MG
     Route: 048
     Dates: start: 20220111
  12. DONEPEZIL [Concomitant]
     Active Substance: DONEPEZIL
  13. FAMOTIDINE [Concomitant]
     Active Substance: FAMOTIDINE
     Indication: Premedication
     Dosage: 20 MG
     Route: 048
     Dates: start: 20220120
  14. FAMOTIDINE [Concomitant]
     Active Substance: FAMOTIDINE
  15. FAMOTIDINE [Concomitant]
     Active Substance: FAMOTIDINE
  16. FUROSEMIDE [Concomitant]
     Active Substance: FUROSEMIDE
     Indication: Oedema peripheral
     Dosage: 20 MG
     Route: 048
     Dates: start: 20210504
  17. FUROSEMIDE [Concomitant]
     Active Substance: FUROSEMIDE
     Dosage: 20 MG
     Route: 048
     Dates: start: 20210304
  18. FUROSEMIDE [Concomitant]
     Active Substance: FUROSEMIDE
  19. GABAPENTIN [Concomitant]
     Active Substance: GABAPENTIN
     Indication: Peripheral sensory neuropathy
     Dosage: 300 MG
     Route: 048
     Dates: start: 20190313
  20. GABAPENTIN [Concomitant]
     Active Substance: GABAPENTIN
  21. GABAPENTIN [Concomitant]
     Active Substance: GABAPENTIN
  22. LOSARTAN [Concomitant]
     Active Substance: LOSARTAN
     Indication: Hypertension
     Dosage: 50 MG
     Route: 048
     Dates: start: 20211208
  23. LOSARTAN [Concomitant]
     Active Substance: LOSARTAN
  24. ONDANSETRON [Concomitant]
     Active Substance: ONDANSETRON
     Indication: Nausea
     Dosage: 4 MG
     Route: 048
     Dates: start: 20200914
  25. PENTOXIFYLLINE [Concomitant]
     Active Substance: PENTOXIFYLLINE
     Indication: Osteonecrosis
     Dosage: 400 MG
     Route: 048
     Dates: start: 20211107
  26. PENTOXIFYLLINE [Concomitant]
     Active Substance: PENTOXIFYLLINE
  27. PROCHLORPERAZINE [Concomitant]
     Active Substance: PROCHLORPERAZINE
     Indication: Nausea
     Dosage: 10 MG
     Route: 048
     Dates: start: 20211119
  28. PROCHLORPERAZINE [Concomitant]
     Active Substance: PROCHLORPERAZINE
  29. SIMVASTATIN [Concomitant]
     Active Substance: SIMVASTATIN
     Indication: Hyperlipidaemia
     Dosage: 20 MG
     Route: 048
     Dates: start: 20210406
  30. SIMVASTATIN [Concomitant]
     Active Substance: SIMVASTATIN
  31. SIMVASTATIN [Concomitant]
     Active Substance: SIMVASTATIN
  32. SULFAMETHOXAZOLE [Concomitant]
     Active Substance: SULFAMETHOXAZOLE
     Indication: Infection prophylaxis
     Dosage: 800 MG
     Route: 048
     Dates: start: 20220120
  33. TAMSULOSIN HYDROCHLORIDE [Concomitant]
     Active Substance: TAMSULOSIN HYDROCHLORIDE
     Indication: Hypertonic bladder
     Dosage: 0.4 MG
     Route: 048
     Dates: start: 20220207
  34. TAMSULOSIN HYDROCHLORIDE [Concomitant]
     Active Substance: TAMSULOSIN HYDROCHLORIDE
  35. TRIMETHOPRIM [Concomitant]
     Active Substance: TRIMETHOPRIM
     Indication: Infection prophylaxis
     Dosage: 160 MG
     Route: 048
     Dates: start: 20220120
  36. TRIMETHOPRIM [Concomitant]
     Active Substance: TRIMETHOPRIM
  37. ENTECAVIR [Concomitant]
     Active Substance: ENTECAVIR
     Indication: Prophylaxis
     Dosage: 0.5 MG
     Route: 048
     Dates: start: 20201102
  38. INSULIN LISPRO 100 UNIT/ML SOLUTION PEN-INJECTOR [Concomitant]
     Indication: Type 2 diabetes mellitus
     Dosage: UNKNOWN ML?FREQUENCY : UNKNOWN
     Route: 058
     Dates: start: 20220127
  39. LATANOPROST 0.005 % SOLUTION [Concomitant]
     Indication: Open angle glaucoma
     Dosage: 1 DRAM
     Route: 047
     Dates: start: 20220224
  40. METFORMIN [Concomitant]
     Active Substance: METFORMIN HYDROCHLORIDE
     Indication: Type 2 diabetes mellitus
     Dosage: 500 MG
     Route: 048
     Dates: start: 20200309

REACTIONS (1)
  - Sepsis [Recovered/Resolved]

NARRATIVE: CASE EVENT DATE: 20220329
